FAERS Safety Report 17581665 (Version 2)
Quarter: 2020Q4

REPORT INFORMATION
  Report Type: Spontaneous
  Country: BR (occurrence: BR)
  Receive Date: 20200325
  Receipt Date: 20201014
  Transmission Date: 20210113
  Serious: Yes (Other)
  Sender: FDA-Public Use
  Company Number: BR-ABBVIE-20P-020-3334282-00

PATIENT
  Sex: Male

DRUGS (6)
  1. RIVOTRIL [Suspect]
     Active Substance: CLONAZEPAM
     Indication: RELAXATION THERAPY
     Route: 048
  2. DEPAKENE [Suspect]
     Active Substance: VALPROIC ACID
     Indication: SEIZURE
     Dosage: DOSE WAS NOT INFORMED
     Route: 048
  3. DIAZEPAM. [Suspect]
     Active Substance: DIAZEPAM
     Indication: RELAXATION THERAPY
  4. DEPAKENE [Suspect]
     Active Substance: VALPROIC ACID
     Dosage: TAKING SPLIT TABLET
     Route: 048
     Dates: start: 2010
  5. DIAZEPAM. [Suspect]
     Active Substance: DIAZEPAM
     Indication: NERVOUSNESS
     Route: 048
  6. TEGRETOL XR [Suspect]
     Active Substance: CARBAMAZEPINE
     Indication: SEIZURE
     Route: 048

REACTIONS (6)
  - Parkinsonism [Recovering/Resolving]
  - Wrong technique in product usage process [Unknown]
  - Walking disability [Recovered/Resolved]
  - Schizophrenia [Not Recovered/Not Resolved]
  - Seizure [Recovering/Resolving]
  - Dementia [Not Recovered/Not Resolved]
